FAERS Safety Report 22070563 (Version 1)
Quarter: 2023Q1

REPORT INFORMATION
  Report Type: Report from Study
  Country: CN (occurrence: CN)
  Receive Date: 20230307
  Receipt Date: 20230307
  Transmission Date: 20230418
  Serious: Yes (Life-Threatening, Hospitalization)
  Sender: FDA-Public Use
  Company Number: CN-JNJFOC-20210924119

PATIENT
  Age: 78 Year
  Sex: Male
  Weight: 71 kg

DRUGS (5)
  1. PLACEBO [Suspect]
     Active Substance: UNSPECIFIED INGREDIENT
     Indication: Prostate cancer
     Dosage: EVERY 4 WEEKS?LAST DOSE 10-SEP-2021
     Route: 048
     Dates: start: 20210315
  2. HU LI SAN [Concomitant]
     Indication: Dermatitis allergic
     Dates: start: 2018
  3. TRIPTORELIN ACETATE [Concomitant]
     Active Substance: TRIPTORELIN ACETATE
     Dosage: EVERY MORNING?LAST DOSE ON 01-SEP-2021
     Route: 065
  4. IRBESARTAN [Concomitant]
     Active Substance: IRBESARTAN
     Indication: Hypertension
     Dates: start: 202102
  5. TONG XIN LUO [Concomitant]
     Indication: Coronary artery disease
     Dates: start: 2019

REACTIONS (2)
  - Sepsis [Recovered/Resolved]
  - White blood cell count decreased [Recovered/Resolved]

NARRATIVE: CASE EVENT DATE: 20210910
